FAERS Safety Report 23639675 (Version 1)
Quarter: 2024Q1

REPORT INFORMATION
  Report Type: Other
  Country: US (occurrence: None)
  Receive Date: 20240316
  Receipt Date: 20240316
  Transmission Date: 20240410
  Serious: Yes (Other)
  Sender: FDA-Public Use
  Company Number: US-ROCHE-3525390

PATIENT

DRUGS (2)
  1. XOLAIR [Suspect]
     Active Substance: OMALIZUMAB
     Indication: Product used for unknown indication
     Route: 065
  2. CROMOLYN [Concomitant]
     Active Substance: CROMOLYN

REACTIONS (2)
  - Anaphylactic reaction [Unknown]
  - Gastrointestinal disorder [Unknown]
